FAERS Safety Report 18410487 (Version 2)
Quarter: 2020Q4

REPORT INFORMATION
  Report Type: Spontaneous
  Country: US (occurrence: US)
  Receive Date: 20201021
  Receipt Date: 20201026
  Transmission Date: 20210114
  Serious: Yes (Other)
  Sender: FDA-Public Use
  Company Number: US-PFIZER INC-2020405064

PATIENT
  Age: 36 Year
  Sex: Female

DRUGS (3)
  1. DILANTIN [Suspect]
     Active Substance: PHENYTOIN
     Dosage: 4 DF, DAILY(2-3 TIMES A WEEK)
  2. DILANTIN [Suspect]
     Active Substance: PHENYTOIN
     Dosage: 100 MG, DAILY (SHE WAS DOWN TO 1 CAPSULE DAILY FROM 3 CAPSULES DAILY)
  3. DILANTIN [Suspect]
     Active Substance: PHENYTOIN
     Indication: GENERALISED TONIC-CLONIC SEIZURE
     Dosage: 300 MG, DAILY(100MG 3 CAPSULES BY MOUTH DAILY)
     Route: 048

REACTIONS (5)
  - Anticonvulsant drug level below therapeutic [Unknown]
  - Intentional product misuse [Unknown]
  - Road traffic accident [Unknown]
  - Disease recurrence [Unknown]
  - Drug dependence [Unknown]

NARRATIVE: CASE EVENT DATE: 2000
